FAERS Safety Report 21570076 (Version 1)
Quarter: 2022Q4

REPORT INFORMATION
  Report Type: Report from Study
  Country: GB (occurrence: GB)
  Receive Date: 20221109
  Receipt Date: 20221109
  Transmission Date: 20230112
  Serious: Yes (Hospitalization, Other)
  Sender: FDA-Public Use
  Company Number: GB-CELLTRION INC.-2022GB018413

PATIENT

DRUGS (43)
  1. TRASTUZUMAB [Suspect]
     Active Substance: TRASTUZUMAB
     Indication: Breast cancer metastatic
     Dosage: 588 MG, 1 TOTAL/LOADING DOSE
     Route: 042
     Dates: start: 20161129, end: 20161129
  2. TRASTUZUMAB [Suspect]
     Active Substance: TRASTUZUMAB
     Dosage: 588 MG, 1 TOTAL/LOADING DOSE
     Route: 042
     Dates: start: 20161129, end: 20161129
  3. TRASTUZUMAB [Suspect]
     Active Substance: TRASTUZUMAB
     Dosage: 420 MG, EVERY 3 WEEKS/ MAINTAINANCE DOSE
     Route: 042
     Dates: start: 20161220
  4. TRASTUZUMAB [Suspect]
     Active Substance: TRASTUZUMAB
     Dosage: 420 MG, EVERY 3 WEEKS /MAINTAINANCE DOSE
     Route: 042
     Dates: start: 20161220
  5. DOCETAXEL [Suspect]
     Active Substance: DOCETAXEL
     Indication: Breast cancer metastatic
     Dosage: 2 CYCLE (PLANNED NUMBER OF CYCLE WAS COMPLETED)
     Route: 042
     Dates: start: 20170228, end: 20170321
  6. DOCETAXEL [Suspect]
     Active Substance: DOCETAXEL
     Dosage: 2 CYCLE (PLANNED NUMBER OF CYCLE WAS COMPLETED)
     Route: 042
     Dates: start: 20170228, end: 20170321
  7. DOCETAXEL [Suspect]
     Active Substance: DOCETAXEL
     Dosage: 2 CYCLE (PLANNED NUMBER OF CYCLE WAS COMPLETED)
     Route: 042
     Dates: start: 20170228, end: 20170321
  8. DOCETAXEL [Suspect]
     Active Substance: DOCETAXEL
     Dosage: 2 CYCLE (PLANNED NUMBER OF CYCLE WAS COMPLETED)
     Route: 042
     Dates: start: 20170228, end: 20170321
  9. DOCETAXEL [Suspect]
     Active Substance: DOCETAXEL
     Dosage: 140 MG, EVERY 3 WEEKS  (CUMULATIVE DOSE TO FIRST REACTION: 486.66666 MG)
     Route: 042
     Dates: start: 20161130, end: 20200131
  10. DOCETAXEL [Suspect]
     Active Substance: DOCETAXEL
     Dosage: 140 MG, EVERY 3 WEEKS (CUMULATIVE DOSE TO FIRST REACTION: 486.66666 MG)
     Route: 042
     Dates: start: 20161130, end: 20200131
  11. DOCETAXEL [Suspect]
     Active Substance: DOCETAXEL
     Dosage: 140 MG, EVERY 3 WEEKS  (CUMULATIVE DOSE TO FIRST REACTION: 486.66666 MG)
     Route: 042
     Dates: start: 20161130, end: 20200131
  12. DOCETAXEL [Suspect]
     Active Substance: DOCETAXEL
     Dosage: 140 MG, EVERY 3 WEEKS (CUMULATIVE DOSE TO FIRST REACTION: 486.66666 MG)
     Route: 042
     Dates: start: 20161130, end: 20200131
  13. DOCETAXEL [Suspect]
     Active Substance: DOCETAXEL
     Dosage: 140 MG, EVERY 3 WEEKS/6 CYCLE, 4 CYCLE
     Route: 042
     Dates: start: 20161130, end: 20170131
  14. DOCETAXEL [Suspect]
     Active Substance: DOCETAXEL
     Dosage: 140 MG, EVERY 3 WEEKS/6 CYCLE, 4 CYCLE (CUMULATIVE DOSE TO FIRST REACTION: 486.66666 MG)
     Route: 042
     Dates: start: 20161130, end: 20170131
  15. DOCETAXEL [Suspect]
     Active Substance: DOCETAXEL
     Dosage: 140 MG, EVERY 3 WEEKS/6 CYCLE, 4 CYCLE (CUMULATIVE DOSE TO FIRST REACTION: 486.66666 MG)
     Route: 042
     Dates: start: 20161130, end: 20170131
  16. DOCETAXEL [Suspect]
     Active Substance: DOCETAXEL
     Dosage: 140 MG, EVERY 3 WEEKS/6 CYCLE, 4 CYCLE (CUMULATIVE DOSE TO FIRST REACTION: 486.66666 MG)
     Route: 042
     Dates: start: 20161130, end: 20170131
  17. DOCETAXEL [Suspect]
     Active Substance: DOCETAXEL
     Dosage: 96 MG, EVERY 3 WEEKS (CUMULATIVE DOSE TO FIRST REACTION: 77.71429 MG)
     Route: 042
     Dates: start: 20170228, end: 20200321
  18. DOCETAXEL [Suspect]
     Active Substance: DOCETAXEL
     Dosage: 96 MG, EVERY 3 WEEKS (CUMULATIVE DOSE TO FIRST REACTION: 77.71429 MG)
     Route: 042
     Dates: start: 20170228, end: 20200321
  19. DOCETAXEL [Suspect]
     Active Substance: DOCETAXEL
     Dosage: 96 MG, EVERY 3 WEEKS (CUMULATIVE DOSE TO FIRST REACTION: 77.71429 MG)
     Route: 042
     Dates: start: 20170228, end: 20200321
  20. DOCETAXEL [Suspect]
     Active Substance: DOCETAXEL
     Dosage: 96 MG, EVERY 3 WEEKS (CUMULATIVE DOSE TO FIRST REACTION: 77.71429 MG)
     Route: 042
     Dates: start: 20170228, end: 20200321
  21. PERTUZUMAB [Suspect]
     Active Substance: PERTUZUMAB
     Indication: Breast cancer metastatic
     Dosage: 420 MG, EVERY 3 WEEKS/MAINTENANCE DOSE/CUMULATIVE DOSE TO FIRST REACTION: 1060.0 MG
     Route: 042
     Dates: start: 20161220, end: 20171107
  22. PERTUZUMAB [Suspect]
     Active Substance: PERTUZUMAB
     Dosage: 420 MG,EVERY 3 WEEKS /MAINTENANCE DOSE/CUMULATIVE DOSE TO FIRST REACTION: 1060.0 MG
     Route: 042
     Dates: start: 20161220, end: 20171107
  23. PERTUZUMAB [Suspect]
     Active Substance: PERTUZUMAB
     Dosage: 588 MG, 1 TOTAL/ LOADING DOSE
     Route: 042
     Dates: start: 20161129, end: 20161129
  24. PERTUZUMAB [Suspect]
     Active Substance: PERTUZUMAB
     Dosage: 588 MG, 1 TOTAL/ LOADING DOSE
     Route: 042
     Dates: start: 20161129, end: 20161129
  25. ADO-TRASTUZUMAB EMTANSINE [Suspect]
     Active Substance: ADO-TRASTUZUMAB EMTANSINE
     Indication: Breast cancer metastatic
     Dosage: 180 MG
     Route: 042
     Dates: start: 20220530
  26. ADO-TRASTUZUMAB EMTANSINE [Suspect]
     Active Substance: ADO-TRASTUZUMAB EMTANSINE
     Dosage: 180 MG
     Route: 042
     Dates: start: 20220530
  27. ADO-TRASTUZUMAB EMTANSINE [Suspect]
     Active Substance: ADO-TRASTUZUMAB EMTANSINE
     Dosage: 180 MG
     Route: 042
     Dates: start: 20220530
  28. ADO-TRASTUZUMAB EMTANSINE [Suspect]
     Active Substance: ADO-TRASTUZUMAB EMTANSINE
     Dosage: 180 MG
     Route: 042
     Dates: start: 20220530
  29. ADO-TRASTUZUMAB EMTANSINE [Suspect]
     Active Substance: ADO-TRASTUZUMAB EMTANSINE
     Dosage: 200 MG, EVERY 3 WEEKS/ CUMULATIVE DOSE TO FIRST REACTION: 5561.508 MG
     Route: 058
     Dates: start: 20180918
  30. ADO-TRASTUZUMAB EMTANSINE [Suspect]
     Active Substance: ADO-TRASTUZUMAB EMTANSINE
     Dosage: 200 MG, EVERY 3 WEEKS/ CUMULATIVE DOSE TO FIRST REACTION: 5561.508 MG
     Route: 058
     Dates: start: 20180918
  31. ADO-TRASTUZUMAB EMTANSINE [Suspect]
     Active Substance: ADO-TRASTUZUMAB EMTANSINE
     Dosage: 200 MG, EVERY 3 WEEKS/ CUMULATIVE DOSE TO FIRST REACTION: 5561.508 MG
     Route: 058
     Dates: start: 20180918
  32. ADO-TRASTUZUMAB EMTANSINE [Suspect]
     Active Substance: ADO-TRASTUZUMAB EMTANSINE
     Dosage: 200 MG, EVERY 3 WEEKS/ CUMULATIVE DOSE TO FIRST REACTION: 5561.508 MG
     Route: 058
     Dates: start: 20180918
  33. ADO-TRASTUZUMAB EMTANSINE [Suspect]
     Active Substance: ADO-TRASTUZUMAB EMTANSINE
     Dosage: 260 MG, EVERY 3 WEEKS/ CUMULATIVE DOSE TO FIRST REACTION: 3578.0952 MG
     Route: 042
     Dates: start: 20171127, end: 20180626
  34. ADO-TRASTUZUMAB EMTANSINE [Suspect]
     Active Substance: ADO-TRASTUZUMAB EMTANSINE
     Dosage: 260 MG, EVERY 3 WEEKS/ CUMULATIVE DOSE TO FIRST REACTION: 3578.0952 MG
     Route: 042
     Dates: start: 20171127, end: 20180626
  35. ADO-TRASTUZUMAB EMTANSINE [Suspect]
     Active Substance: ADO-TRASTUZUMAB EMTANSINE
     Dosage: 260 MG, EVERY 3 WEEKS/ CUMULATIVE DOSE TO FIRST REACTION: 3578.0952 MG
     Route: 042
     Dates: start: 20171127, end: 20180626
  36. ADO-TRASTUZUMAB EMTANSINE [Suspect]
     Active Substance: ADO-TRASTUZUMAB EMTANSINE
     Dosage: 260 MG, EVERY 3 WEEKS/ CUMULATIVE DOSE TO FIRST REACTION: 3578.0952 MG
     Route: 042
     Dates: start: 20171127, end: 20180626
  37. ADO-TRASTUZUMAB EMTANSINE [Suspect]
     Active Substance: ADO-TRASTUZUMAB EMTANSINE
     Dosage: 180 MG, EVERY 3 WEEKS/ CUMULATIVE DOSE TO FIRST REACTION: 9642.857 MG
     Route: 042
     Dates: start: 20200312
  38. ADO-TRASTUZUMAB EMTANSINE [Suspect]
     Active Substance: ADO-TRASTUZUMAB EMTANSINE
     Dosage: 180 MG, EVERY 3 WEEKS/ CUMULATIVE DOSE TO FIRST REACTION: 9642.857 MG
     Route: 042
     Dates: start: 20200312
  39. ADO-TRASTUZUMAB EMTANSINE [Suspect]
     Active Substance: ADO-TRASTUZUMAB EMTANSINE
     Dosage: 180 MG, EVERY 3 WEEKS/ CUMULATIVE DOSE TO FIRST REACTION: 9642.857 MG
     Route: 042
     Dates: start: 20200312
  40. ADO-TRASTUZUMAB EMTANSINE [Suspect]
     Active Substance: ADO-TRASTUZUMAB EMTANSINE
     Dosage: 180 MG, EVERY 3 WEEKS/ CUMULATIVE DOSE TO FIRST REACTION: 9642.857 MG
     Route: 042
     Dates: start: 20200312
  41. CALCIUM CARBONATE\CHOLECALCIFEROL [Concomitant]
     Active Substance: CALCIUM CARBONATE\CHOLECALCIFEROL
     Dosage: 1.5 G, QD
     Route: 048
  42. DENOSUMAB [Concomitant]
     Active Substance: DENOSUMAB
     Dosage: 120 MG
     Route: 058
     Dates: start: 20161129
  43. OMEPRAZOLE [Concomitant]
     Active Substance: OMEPRAZOLE
     Indication: Gastrooesophageal reflux disease
     Dosage: 40 MG, QD/ CUMULATIVE DOSE TO FIRST REACTION: 160.0 MG
     Route: 048
     Dates: start: 20170207

REACTIONS (2)
  - Hepatic fibrosis [Not Recovered/Not Resolved]
  - Neutropenic sepsis [Recovered/Resolved]

NARRATIVE: CASE EVENT DATE: 20170211
